FAERS Safety Report 5459404-0 (Version None)
Quarter: 2007Q3

REPORT INFORMATION
  Report Type: 
  Country: None (occurrence: None)
  Receive Date: 20070919
  Receipt Date: 20070910
  Transmission Date: 20080115
  Serious: Yes (Hospitalization)
  Sender: FDA-Public Use
  Company Number: US-JNJFOC-20070902320

PATIENT
  Sex: Female
  Weight: 61.24 kg

DRUGS (4)
  1. DURAGESIC-100 [Suspect]
     Dosage: TWO 100UG/HR PATCHES
     Route: 062
  2. DURAGESIC-100 [Suspect]
     Dosage: 100UG/HR+75UG/HR
     Route: 062
  3. DURAGESIC-100 [Suspect]
     Dosage: TWO 100UG/HR PATCHES
     Route: 062
  4. DURAGESIC-100 [Suspect]
     Indication: PAIN
     Route: 062

REACTIONS (5)
  - DRUG INEFFECTIVE [None]
  - INAPPROPRIATE SCHEDULE OF DRUG ADMINISTRATION [None]
  - INCORRECT DRUG ADMINISTRATION DURATION [None]
  - PERONEAL NERVE PALSY [None]
  - PHARMACEUTICAL PRODUCT COMPLAINT [None]
